FAERS Safety Report 5013702-3 (Version None)
Quarter: 2006Q2

REPORT INFORMATION
  Report Type: 
  Country: None (occurrence: None)
  Receive Date: 20060530
  Receipt Date: 20041216
  Transmission Date: 20061013
  Serious: Yes (Other)
  Sender: FDA-Public Use
  Company Number: DE-BRISTOL-MYERS SQUIBB COMPANY-12798591

PATIENT
  Age: 32 Year
  Sex: Female
  Weight: 51 kg

DRUGS (4)
  1. REYATAZ [Suspect]
     Indication: HIV INFECTION
     Route: 048
     Dates: start: 20030707
  2. VIDEX EC [Suspect]
     Indication: HIV INFECTION
     Route: 048
     Dates: start: 20021219
  3. VIREAD [Suspect]
     Indication: HIV INFECTION
     Route: 048
     Dates: start: 20021219
  4. VIRAMUNE [Suspect]

REACTIONS (3)
  - PRE-ECLAMPSIA [None]
  - PREMATURE LABOUR [None]
  - TWIN PREGNANCY [None]
